FAERS Safety Report 9501387 (Version 1)
Quarter: 2013Q3

REPORT INFORMATION
  Report Type: Spontaneous
  Country: US (occurrence: US)
  Receive Date: 20130905
  Receipt Date: 20130905
  Transmission Date: 20140515
  Serious: No
  Sender: FDA-Public Use
  Company Number: US-PFIZER INC-2013255886

PATIENT
  Age: 62 Year
  Sex: Female

DRUGS (2)
  1. SUTENT [Suspect]
     Dosage: UNK
  2. VANCOMYCIN HCL [Suspect]
     Indication: BACTERIAL INFECTION
     Dosage: UNK
     Dates: start: 2013

REACTIONS (2)
  - Hot flush [Unknown]
  - Diarrhoea [Unknown]
